FAERS Safety Report 7146422-X (Version None)
Quarter: 2010Q4

REPORT INFORMATION
  Report Type: 
  Country: None (occurrence: None)
  Receive Date: 20101208
  Receipt Date: 20100819
  Transmission Date: 20110411
  Serious: No
  Sender: FDA-Public Use
  Company Number: US-BRISTOL-MYERS SQUIBB COMPANY-15247984

PATIENT
  Age: 74 Year
  Sex: Female
  Weight: 79 kg

DRUGS (4)
  1. PRAVACHOL [Suspect]
  2. TOPROL-XL [Concomitant]
  3. PRILOSEC [Concomitant]
  4. ASPIRIN [Concomitant]

REACTIONS (1)
  - BLOOD CHOLESTEROL ABNORMAL [None]
